FAERS Safety Report 19739807 (Version 1)
Quarter: 2021Q3

REPORT INFORMATION
  Report Type: Spontaneous
  Country: CA (occurrence: CA)
  Receive Date: 20210824
  Receipt Date: 20210824
  Transmission Date: 20211014
  Serious: Yes (Hospitalization)
  Sender: FDA-Public Use
  Company Number: CA-BAYER-2021-194575

PATIENT
  Age: 73 Year
  Sex: Female

DRUGS (14)
  1. CIPRO [Suspect]
     Active Substance: CIPROFLOXACIN HYDROCHLORIDE
     Indication: URINARY TRACT INFECTION
     Dosage: 500 MG, BID
     Route: 048
  2. NITROFURANTOIN. [Suspect]
     Active Substance: NITROFURANTOIN
     Indication: URINARY TRACT INFECTION
     Dosage: 100 MG
     Route: 048
  3. PAROXETINE. [Concomitant]
     Active Substance: PAROXETINE
  4. ACETAMINOPHEN. [Concomitant]
     Active Substance: ACETAMINOPHEN
  5. ONDANSETRON [Concomitant]
     Active Substance: ONDANSETRON
  6. JANUVIA [Concomitant]
     Active Substance: SITAGLIPTIN PHOSPHATE
  7. LISPRO INSULIN [Concomitant]
     Active Substance: INSULIN LISPRO
  8. DIMENHYDRINATE. [Concomitant]
     Active Substance: DIMENHYDRINATE
  9. ENOXAPARIN [Concomitant]
     Active Substance: ENOXAPARIN
  10. METOPROLOL. [Concomitant]
     Active Substance: METOPROLOL
  11. PANTOPRAZOLE [Concomitant]
     Active Substance: PANTOPRAZOLE
  12. ROSUVASTATIN. [Concomitant]
     Active Substance: ROSUVASTATIN
  13. LORAZEPAM. [Concomitant]
     Active Substance: LORAZEPAM
  14. METFORMIN [Concomitant]
     Active Substance: METFORMIN HYDROCHLORIDE

REACTIONS (6)
  - Clostridium test positive [Unknown]
  - Feeling abnormal [Unknown]
  - Vomiting [Unknown]
  - Diarrhoea [Unknown]
  - Abdominal distension [None]
  - Nausea [Unknown]
